FAERS Safety Report 16317494 (Version 1)
Quarter: 2019Q2

REPORT INFORMATION
  Report Type: Spontaneous
  Country: GB (occurrence: GB)
  Receive Date: 20190516
  Receipt Date: 20190516
  Transmission Date: 20190711
  Serious: Yes (Other)
  Sender: FDA-Public Use
  Company Number: GB-AUROBINDO-AUR-APL-2019-027385

PATIENT

DRUGS (3)
  1. IBUPROFEN. [Concomitant]
     Active Substance: IBUPROFEN
     Indication: ILL-DEFINED DISORDER
     Dosage: TAKE ONE EVERY 4 HRS
     Route: 065
     Dates: start: 20160908
  2. AMOXICILLIN. [Suspect]
     Active Substance: AMOXICILLIN
     Indication: ILL-DEFINED DISORDER
     Dosage: UNK
     Route: 065
     Dates: start: 20170401
  3. FLUCLOXACILLIN [Concomitant]
     Active Substance: FLUCLOXACILLIN
     Indication: ILL-DEFINED DISORDER
     Dosage: AGE 10 YEARS TO 17 YEARS. 7 DAY COURSE. TAKE TW...
     Route: 065
     Dates: start: 20170411, end: 20170418

REACTIONS (1)
  - Pseudofolliculitis [Recovered/Resolved with Sequelae]

NARRATIVE: CASE EVENT DATE: 20170502
